FAERS Safety Report 17730130 (Version 4)
Quarter: 2020Q2

REPORT INFORMATION
  Report Type: Report from Study
  Country: US (occurrence: US)
  Receive Date: 20200430
  Receipt Date: 20200618
  Transmission Date: 20200714
  Serious: Yes (Hospitalization, Other)
  Sender: FDA-Public Use
  Company Number: US-ROCHE-2229710

PATIENT
  Age: 25 Year
  Sex: Female
  Weight: 65 kg

DRUGS (1)
  1. ATEZOLIZUMAB. [Suspect]
     Active Substance: ATEZOLIZUMAB
     Indication: ALVEOLAR SOFT PART SARCOMA
     Route: 042
     Dates: start: 20170926, end: 20181101

REACTIONS (2)
  - Pre-eclampsia [Recovered/Resolved with Sequelae]
  - Pregnancy [Unknown]

NARRATIVE: CASE EVENT DATE: 20190528
